FAERS Safety Report 8110670-2 (Version None)
Quarter: 2012Q1

REPORT INFORMATION
  Report Type: 
  Country: None (occurrence: None)
  Receive Date: 20120201
  Receipt Date: 20120201
  Transmission Date: 20120608
  Serious: Yes (Hospitalization)
  Sender: FDA-Public Use
  Company Number: None

PATIENT
  Sex: Female
  Weight: 82.1 kg

DRUGS (13)
  1. PREDNISONE [Suspect]
     Dosage: 1150 MG
  2. RITUXIMAB (MOAB C2B8 ANTI CD20, CHIMERIC) [Suspect]
     Dosage: 710 MG
  3. DOXORUBICIN HCL [Suspect]
     Dosage: 76 MG
  4. FLUCONAZOLE [Concomitant]
  5. VINCRISTINE SULFATE [Suspect]
     Dosage: 3.04 MG
  6. SULFAMETHOXAZOLE AND TRIMETHOPRIM [Concomitant]
  7. ZINC SULFATE [Concomitant]
  8. LOPERAMIDE HCL [Concomitant]
  9. ETOPOSIDE [Suspect]
     Dosage: 380 MG
  10. VALACYCLAVIR [Concomitant]
  11. CYCLOPHOSPHAMIDE [Suspect]
     Dosage: 1420 MG
  12. OMEPRAZOLE [Concomitant]
  13. LEVOFLOXACIN [Concomitant]

REACTIONS (4)
  - NEUTROPENIA [None]
  - ABDOMINAL PAIN [None]
  - DIARRHOEA [None]
  - VOMITING [None]
